FAERS Safety Report 21057739 (Version 1)
Quarter: 2022Q3

REPORT INFORMATION
  Report Type: Report from Study
  Country: US (occurrence: US)
  Receive Date: 20220708
  Receipt Date: 20220708
  Transmission Date: 20221027
  Serious: Yes (Hospitalization)
  Sender: FDA-Public Use
  Company Number: US-Accord-268571

PATIENT
  Sex: Male
  Weight: 89.10 kg

DRUGS (8)
  1. CLOZAPINE [Suspect]
     Active Substance: CLOZAPINE
     Indication: Schizoaffective disorder bipolar type
     Dosage: 225 MG IN THE MORNING, 300 MG AT?BEDTIME
     Route: 048
     Dates: start: 202112
  2. DEPAKOTE [Concomitant]
     Active Substance: DIVALPROEX SODIUM
     Dosage: 1250 MG AM/1000MG?AT BEDTIME
  3. HALDOL [Concomitant]
     Active Substance: HALOPERIDOL
     Dosage: 100 EVERY 2 WEEKS
  4. LEVOTHYROXINE [Concomitant]
     Active Substance: LEVOTHYROXINE
     Dosage: 75 MCG DAILY
  5. PALIPERIDONE [Concomitant]
     Active Substance: PALIPERIDONE
     Dosage: 234 MG EVERY 4 WEEKS
  6. COGENTIN [Concomitant]
     Active Substance: BENZTROPINE MESYLATE
     Dosage: 1 MG TWICE DAILY
  7. PROPRANOLOL [Concomitant]
     Active Substance: PROPRANOLOL HYDROCHLORIDE
     Indication: Anxiety
     Dosage: 10 MG AS NEEDED EVERY 6 HOURS
  8. HALDOL [Concomitant]
     Active Substance: HALOPERIDOL
     Dosage: 5 MG DAILY WITH LUNCH AND AT BEDTIME
     Route: 048

REACTIONS (1)
  - Psychiatric decompensation [Unknown]
